FAERS Safety Report 17402709 (Version 2)
Quarter: 2020Q1

REPORT INFORMATION
  Report Type: Spontaneous
  Country: JP (occurrence: JP)
  Receive Date: 20200211
  Receipt Date: 20200318
  Transmission Date: 20200409
  Serious: Yes (Hospitalization, Other)
  Sender: FDA-Public Use
  Company Number: JP-PFIZER INC-2020060091

PATIENT
  Age: 61 Year
  Sex: Female
  Weight: 40 kg

DRUGS (9)
  1. BAKTAR [Concomitant]
     Active Substance: SULFAMETHOXAZOLE\TRIMETHOPRIM
     Dosage: UNK UNK, UNKNOWN FREQ.
     Route: 065
  2. PREDONINE [Concomitant]
     Active Substance: PREDNISOLONE
     Dosage: UNK UNK, UNKNOWN FREQ.
     Route: 065
  3. MAGMITT [Concomitant]
     Active Substance: MAGNESIUM OXIDE
     Dosage: UNK UNK, UNKNOWN FREQ.
     Route: 065
  4. TAKECAB [Suspect]
     Active Substance: VONOPRAZAN FUMURATE
     Dosage: 20 MG, 1X/DAY
     Route: 048
     Dates: start: 20190407, end: 20191205
  5. PANTETHINE TEVA [Concomitant]
     Dosage: UNK UNK, UNKNOWN FREQ.
     Route: 065
  6. CELECOX [Suspect]
     Active Substance: CELECOXIB
     Dosage: 200 MG, 2X/DAY
     Route: 048
     Dates: start: 20190612, end: 20191202
  7. ALLELOCK [Concomitant]
     Active Substance: OLOPATADINE HYDROCHLORIDE
     Dosage: UNK UNK, UNKNOWN FREQ.
     Route: 065
  8. CINAL (ASCORBIC ACID\CALCIUM PANTOTHENATE) [Concomitant]
     Active Substance: ASCORBIC ACID\CALCIUM PANTOTHENATE
     Dosage: UNK UNK, UNKNOWN FREQ.
     Route: 065
  9. CELECOX [Suspect]
     Active Substance: CELECOXIB
     Dosage: UNK UNK, AS NEEDED
     Route: 048
     Dates: start: 20191203, end: 20191203

REACTIONS (1)
  - Inappropriate antidiuretic hormone secretion [Recovering/Resolving]

NARRATIVE: CASE EVENT DATE: 20191120
